FAERS Safety Report 9125422 (Version 2)
Quarter: 2013Q2

REPORT INFORMATION
  Report Type: Spontaneous
  Country: US (occurrence: US)
  Receive Date: 20130227
  Receipt Date: 20130402
  Transmission Date: 20140414
  Serious: Yes (Hospitalization)
  Sender: FDA-Public Use
  Company Number: US-ALEXION-A201300276

PATIENT
  Sex: Male
  Weight: 68.6 kg

DRUGS (10)
  1. SOLIRIS 300MG [Suspect]
     Indication: PAROXYSMAL NOCTURNAL HAEMOGLOBINURIA
     Dosage: 600 MG, QW X 4W
     Dates: end: 20130131
  2. SOLIRIS 300MG [Suspect]
     Dosage: 900 MG, Q2W
     Route: 042
     Dates: start: 20130207
  3. ATG [Concomitant]
     Dosage: UNK, SINGLE
     Dates: start: 201301, end: 201301
  4. CARAFATE [Concomitant]
  5. CLINDAMYCIN [Concomitant]
     Route: 061
  6. COLACE [Concomitant]
  7. MULTIVITAMINS, OTHER COMBINATIONS [Concomitant]
  8. NEXIUM [Concomitant]
  9. TYLENOL [Concomitant]
     Indication: PREMEDICATION
  10. BENADRYL [Concomitant]
     Indication: PREMEDICATION

REACTIONS (2)
  - Upper respiratory tract infection [Unknown]
  - Abdominal pain [Unknown]
